FAERS Safety Report 23652454 (Version 1)
Quarter: 2024Q1

REPORT INFORMATION
  Report Type: Spontaneous
  Country: MY (occurrence: MY)
  Receive Date: 20240320
  Receipt Date: 20240320
  Transmission Date: 20240410
  Serious: Yes (Hospitalization)
  Sender: FDA-Public Use
  Company Number: MY-IPSEN Group, Research and Development-2024-04174

PATIENT
  Age: 83 Year
  Sex: Male

DRUGS (1)
  1. CABOMETYX [Suspect]
     Active Substance: CABOZANTINIB S-MALATE
     Indication: Renal cell carcinoma
     Route: 065

REACTIONS (2)
  - Pneumonia aspiration [Not Recovered/Not Resolved]
  - Diarrhoea [Not Recovered/Not Resolved]
